FAERS Safety Report 7816523-9 (Version None)
Quarter: 2011Q4

REPORT INFORMATION
  Report Type: 
  Country: None (occurrence: None)
  Receive Date: 20111017
  Receipt Date: 20111006
  Transmission Date: 20120403
  Serious: Yes (Other)
  Sender: FDA-Public Use
  Company Number: JP-JNJFOC-20111000781

PATIENT
  Age: 86 Year
  Sex: Female

DRUGS (2)
  1. RISPERDAL [Suspect]
     Indication: DELIRIUM
     Route: 048
     Dates: start: 20110926, end: 20110929
  2. HALCION [Concomitant]
     Indication: INSOMNIA
     Route: 048
     Dates: start: 20110926, end: 20110929

REACTIONS (5)
  - DEPRESSED LEVEL OF CONSCIOUSNESS [None]
  - SNORING [None]
  - TRANSIENT ISCHAEMIC ATTACK [None]
  - RENAL IMPAIRMENT [None]
  - DEHYDRATION [None]
